FAERS Safety Report 18753494 (Version 1)
Quarter: 2021Q1

REPORT INFORMATION
  Report Type: Spontaneous
  Country: FR (occurrence: FR)
  Receive Date: 20210118
  Receipt Date: 20210118
  Transmission Date: 20210419
  Serious: Yes (Other)
  Sender: FDA-Public Use
  Company Number: FR-BAUSCH-BL-2021-001618

PATIENT
  Age: 49 Year
  Sex: Female

DRUGS (2)
  1. XENAZINE [Suspect]
     Active Substance: TETRABENAZINE
     Indication: DYSTONIA
     Dosage: SCORED TABLET
     Route: 048
     Dates: start: 20201124, end: 20201124
  2. XENAZINE [Suspect]
     Active Substance: TETRABENAZINE
     Indication: PRODUCT USE IN UNAPPROVED INDICATION
     Dosage: SCORED TABLET. DOSE REDUCED
     Route: 048
     Dates: start: 20201124, end: 20201218

REACTIONS (7)
  - Oculogyric crisis [Recovering/Resolving]
  - Product use in unapproved indication [Unknown]
  - Salivary hypersecretion [Recovering/Resolving]
  - Hyperhidrosis [Recovering/Resolving]
  - Balance disorder [Recovering/Resolving]
  - Aggression [Recovering/Resolving]
  - Vomiting [Recovering/Resolving]

NARRATIVE: CASE EVENT DATE: 20201124
